FAERS Safety Report 10501847 (Version 1)
Quarter: 2014Q4

REPORT INFORMATION
  Report Type: Spontaneous
  Country: US (occurrence: US)
  Receive Date: 20141007
  Receipt Date: 20141007
  Transmission Date: 20150528
  Serious: No
  Sender: FDA-Public Use
  Company Number: US-PFIZER INC-2014271146

PATIENT
  Sex: Male

DRUGS (1)
  1. ADVIL [Suspect]
     Active Substance: IBUPROFEN
     Indication: HEADACHE
     Dosage: 1 TABLET, AS NEEDED EVERY 4 TO 6 HOURS
     Dates: start: 201409, end: 201409

REACTIONS (4)
  - Pain [Recovered/Resolved]
  - Burning sensation [Recovered/Resolved]
  - Product coating issue [Recovered/Resolved]
  - Dysphagia [Recovered/Resolved]

NARRATIVE: CASE EVENT DATE: 201409
